FAERS Safety Report 12437381 (Version 1)
Quarter: 2016Q2

REPORT INFORMATION
  Report Type: Report from Study
  Country: BR (occurrence: BR)
  Receive Date: 20160606
  Receipt Date: 20160606
  Transmission Date: 20160815
  Serious: Yes (Death, Hospitalization)
  Sender: FDA-Public Use
  Company Number: PHHY2016BR065121

PATIENT
  Sex: Female
  Weight: 54 kg

DRUGS (1)
  1. AFINITOR [Suspect]
     Active Substance: EVEROLIMUS
     Indication: METASTATIC RENAL CELL CARCINOMA
     Dosage: 1 DF OF 10 MG, UNK
     Route: 048
     Dates: start: 201603

REACTIONS (5)
  - Multiple organ dysfunction syndrome [Fatal]
  - Asthenia [Fatal]
  - Renal failure [Fatal]
  - Malaise [Fatal]
  - Dyspnoea [Unknown]
